FAERS Safety Report 8976251 (Version 1)
Quarter: 2012Q4

REPORT INFORMATION
  Report Type: 
  Country: US (occurrence: US)
  Receive Date: 20121219
  Receipt Date: 20121219
  Transmission Date: 20130627
  Serious: No
  Sender: FDA-Public Use
  Company Number: US-AMGEN-USASP2012065106

PATIENT
  Age: 74 Year
  Sex: Female

DRUGS (7)
  1. PROLIA [Suspect]
     Indication: OSTEOPOROSIS POSTMENOPAUSAL
     Dosage: UNK
     Dates: start: 20111014
  2. FISH OIL [Concomitant]
     Dosage: UNK
  3. CALCIUM WITH VITAMIN D             /00944201/ [Concomitant]
     Dosage: UNK
  4. BABY ASPIRIN [Concomitant]
     Dosage: UNK
  5. BENICAR [Concomitant]
     Dosage: UNK
  6. EYE DROPS                          /00256502/ [Concomitant]
     Indication: EYE IRRITATION
     Dosage: UNK UNK, prn
  7. ANTIHISTAMINES [Concomitant]
     Indication: HYPERSENSITIVITY
     Dosage: UNK UNK, prn

REACTIONS (3)
  - Musculoskeletal pain [Unknown]
  - Oropharyngeal pain [Unknown]
  - Dysphagia [Unknown]
